FAERS Safety Report 9291623 (Version 2)
Quarter: 2013Q2

REPORT INFORMATION
  Report Type: Spontaneous
  Country: ES (occurrence: ES)
  Receive Date: 20130515
  Receipt Date: 20130527
  Transmission Date: 20140414
  Serious: No
  Sender: FDA-Public Use
  Company Number: ES-009507513-1305ESP003996

PATIENT
  Age: 84 Year
  Sex: Female

DRUGS (4)
  1. REXER [Suspect]
     Indication: INSOMNIA
     Route: 048
  2. REXER [Interacting]
     Indication: DEPRESSION
  3. ONDANSETRON [Interacting]
     Indication: NAUSEA
     Dosage: 8 MG, BID
  4. ONDANSETRON [Interacting]
     Indication: VOMITING
     Dosage: 4 MG, UNK

REACTIONS (3)
  - Drug interaction [Unknown]
  - Nausea [Unknown]
  - Vomiting [Unknown]
